FAERS Safety Report 12106591 (Version 1)
Quarter: 2016Q1

REPORT INFORMATION
  Report Type: Other
  Country: US (occurrence: US)
  Receive Date: 20160223
  Receipt Date: 20160223
  Transmission Date: 20160526
  Serious: Yes (Other)
  Sender: FDA-Public Use
  Company Number: US-GUTHY-RENKER LLC-1048323

PATIENT
  Sex: Female

DRUGS (4)
  1. PROACTIV SOLUTION REPAIRING TREATMENT [Suspect]
     Active Substance: BENZOYL PEROXIDE
     Indication: ACNE
     Route: 061
     Dates: start: 20160114, end: 20160117
  2. THYROID MEDICATIONS [Concomitant]
  3. STOMACH MEDICATIONS [Concomitant]
  4. PROACTIV RENEWING CLEANSER [Suspect]
     Active Substance: BENZOYL PEROXIDE
     Route: 061
     Dates: start: 20160114, end: 20160117

REACTIONS (5)
  - Rash [None]
  - Swelling face [None]
  - Application site rash [None]
  - Angioedema [Recovered/Resolved]
  - Application site swelling [None]

NARRATIVE: CASE EVENT DATE: 20160117
